FAERS Safety Report 25938898 (Version 1)
Quarter: 2025Q4

REPORT INFORMATION
  Report Type: Report from Study
  Country: CA (occurrence: CA)
  Receive Date: 20251019
  Receipt Date: 20251019
  Transmission Date: 20260118
  Serious: Yes (Other)
  Sender: ABBVIE
  Company Number: None

PATIENT
  Age: 41 Year
  Sex: Female

DRUGS (2)
  1. CITALOPRAM [Suspect]
     Active Substance: CITALOPRAM
     Indication: Product used for unknown indication
     Dosage: FORM: UNKNOWN
     Route: 065
  2. NUCALA [Suspect]
     Active Substance: MEPOLIZUMAB
     Indication: Asthma
     Dosage: DOSE TEXT - 100 MILLIGRAM
     Route: 042

REACTIONS (8)
  - Finger amputation [Unknown]
  - Platelet disorder [Unknown]
  - Surgery [Unknown]
  - Contusion [Unknown]
  - Osteomyelitis [Unknown]
  - Infection [Unknown]
  - Limb injury [Unknown]
  - Foot fracture [Unknown]
